FAERS Safety Report 8200515-4 (Version None)
Quarter: 2012Q1

REPORT INFORMATION
  Report Type: 
  Country: None (occurrence: None)
  Receive Date: 20120301
  Receipt Date: 20120216
  Transmission Date: 20120608
  Serious: Yes (Hospitalization, Other)
  Sender: FDA-Public Use
  Company Number: 2011028871

PATIENT
  Sex: Female
  Weight: 83.4619 kg

DRUGS (58)
  1. HIZENTRA [Suspect]
     Indication: IMMUNODEFICIENCY COMMON VARIABLE
     Dosage: SEE IMAGE, SUBCUTANEOUS
     Route: 058
     Dates: start: 20101218
  2. HIZENTRA [Suspect]
     Indication: IMMUNODEFICIENCY COMMON VARIABLE
     Dosage: SEE IMAGE, SUBCUTANEOUS
     Route: 058
     Dates: start: 20101001
  3. HIZENTRA [Suspect]
     Indication: IMMUNODEFICIENCY COMMON VARIABLE
     Dosage: SEE IMAGE, SUBCUTANEOUS
     Route: 058
     Dates: start: 20101026
  4. HIZENTRA [Suspect]
     Indication: IMMUNODEFICIENCY COMMON VARIABLE
     Dosage: SEE IMAGE, SUBCUTANEOUS
     Route: 058
     Dates: start: 20101026
  5. HIZENTRA [Suspect]
     Indication: IMMUNODEFICIENCY COMMON VARIABLE
     Dosage: SEE IMAGE, SUBCUTANEOUS
     Route: 058
     Dates: start: 20101218
  6. HIZENTRA [Suspect]
     Indication: IMMUNODEFICIENCY COMMON VARIABLE
     Dosage: SEE IMAGE, SUBCUTANEOUS
     Route: 058
     Dates: start: 20101001
  7. HIZENTRA [Suspect]
     Indication: IMMUNODEFICIENCY COMMON VARIABLE
     Dosage: SEE IMAGE, SUBCUTANEOUS
     Route: 058
     Dates: start: 20110903, end: 20110903
  8. HIZENTRA [Suspect]
     Indication: IMMUNODEFICIENCY COMMON VARIABLE
     Dosage: SEE IMAGE, SUBCUTANEOUS
     Route: 058
     Dates: start: 20101208
  9. HIZENTRA [Suspect]
     Indication: IMMUNODEFICIENCY COMMON VARIABLE
     Dosage: SEE IMAGE, SUBCUTANEOUS
     Route: 058
     Dates: start: 20101218
  10. HIZENTRA [Suspect]
     Indication: IMMUNODEFICIENCY COMMON VARIABLE
     Dosage: SEE IMAGE, SUBCUTANEOUS
     Route: 058
     Dates: start: 20101026
  11. HIZENTRA [Suspect]
     Indication: IMMUNODEFICIENCY COMMON VARIABLE
     Dosage: SEE IMAGE, SUBCUTANEOUS
     Route: 058
     Dates: start: 20111026
  12. HIZENTRA [Suspect]
     Indication: IMMUNODEFICIENCY COMMON VARIABLE
     Dosage: SEE IMAGE, SUBCUTANEOUS
     Route: 058
     Dates: start: 20101218
  13. HIZENTRA [Suspect]
     Indication: IMMUNODEFICIENCY COMMON VARIABLE
     Dosage: SEE IMAGE, SUBCUTANEOUS
     Route: 058
     Dates: start: 20101026
  14. HIZENTRA [Suspect]
     Indication: IMMUNODEFICIENCY COMMON VARIABLE
     Dosage: SEE IMAGE, SUBCUTANEOUS
     Route: 058
     Dates: start: 20120213, end: 20120214
  15. HIZENTRA [Suspect]
     Indication: IMMUNODEFICIENCY COMMON VARIABLE
     Dosage: SEE IMAGE, SUBCUTANEOUS
     Route: 058
     Dates: start: 20101218
  16. HIZENTRA [Suspect]
     Indication: IMMUNODEFICIENCY COMMON VARIABLE
     Dosage: SEE IMAGE, SUBCUTANEOUS
     Route: 058
     Dates: start: 20101208
  17. HIZENTRA [Suspect]
     Indication: IMMUNODEFICIENCY COMMON VARIABLE
     Dosage: SEE IMAGE, SUBCUTANEOUS
     Route: 058
     Dates: start: 20101026
  18. HIZENTRA [Suspect]
     Indication: IMMUNODEFICIENCY COMMON VARIABLE
     Dosage: SEE IMAGE, SUBCUTANEOUS
     Route: 058
     Dates: start: 20111026
  19. HIZENTRA [Suspect]
     Indication: IMMUNODEFICIENCY COMMON VARIABLE
     Dosage: SEE IMAGE, SUBCUTANEOUS
     Route: 058
     Dates: start: 20110903, end: 20110903
  20. HIZENTRA [Suspect]
  21. LORATADINE [Concomitant]
  22. VITAMIN D [Concomitant]
  23. PRILOSEC [Concomitant]
  24. 24 HOUR OXYGEN (OXYGEN) [Concomitant]
  25. HIZENTRA [Suspect]
  26. HIZENTRA [Suspect]
  27. LOTEMAX [Concomitant]
  28. PROBIOTIC (LACTOBACILLUS ACIDOPHILUS) [Concomitant]
  29. LEXAPRO [Concomitant]
  30. RESTASIS [Concomitant]
  31. HIZENTRA [Suspect]
  32. HIZENTRA [Suspect]
  33. VIVELLE-DOT [Concomitant]
  34. LIDODERM [Concomitant]
  35. HIZENTRA [Suspect]
  36. OXYCONTIN [Concomitant]
  37. ESTRING [Concomitant]
  38. TYLENOL #3 (PANADEINE) [Concomitant]
  39. TYLENOL ARTHRITIS (PARACETAMOL) [Concomitant]
  40. OXYGEN (OXYGEN) [Concomitant]
  41. HIZENTRA [Suspect]
  42. HIZENTRA [Suspect]
  43. HIZENTRA [Suspect]
  44. HIZENTRA [Suspect]
  45. HIZENTRA [Suspect]
  46. PLAQUENIL [Concomitant]
  47. HIZENTRA [Suspect]
  48. VICODIN [Concomitant]
  49. ZOFRAN [Concomitant]
  50. CLONAZEPAM [Concomitant]
  51. SYNTHROID [Concomitant]
  52. PREDNISONE TAB [Concomitant]
  53. ADVAIR DISKUS 100/50 [Concomitant]
  54. FLORINEF [Concomitant]
  55. ZITHROMAX [Concomitant]
  56. HIZENTRA [Suspect]
  57. HIZENTRA [Suspect]
  58. BACTROBAN [Concomitant]

REACTIONS (39)
  - PAIN [None]
  - HEADACHE [None]
  - NAUSEA [None]
  - DIZZINESS [None]
  - ORAL CANDIDIASIS [None]
  - PYREXIA [None]
  - INTERSTITIAL LUNG DISEASE [None]
  - SINUS HEADACHE [None]
  - PARONYCHIA [None]
  - HYPOXIA [None]
  - MYALGIA [None]
  - DEVICE RELATED INFECTION [None]
  - DRUG DOSE OMISSION [None]
  - INFLUENZA LIKE ILLNESS [None]
  - SINUSITIS [None]
  - VOMITING [None]
  - GLOSSODYNIA [None]
  - ARTHRITIS [None]
  - CONFUSIONAL STATE [None]
  - LUNG DISORDER [None]
  - OTITIS EXTERNA [None]
  - RESPIRATORY TRACT INFECTION [None]
  - WHEEZING [None]
  - CONDITION AGGRAVATED [None]
  - DYSPNOEA [None]
  - PULMONARY FIBROSIS [None]
  - EAR INFECTION FUNGAL [None]
  - CHILLS [None]
  - PARANASAL SINUS HYPERSECRETION [None]
  - FATIGUE [None]
  - ORAL PAIN [None]
  - WOUND [None]
  - SKIN LESION [None]
  - HYPERHIDROSIS [None]
  - SINUS CONGESTION [None]
  - OTITIS MEDIA [None]
  - IMPAIRED HEALING [None]
  - HERPES VIRUS INFECTION [None]
  - OROPHARYNGEAL PAIN [None]
